FAERS Safety Report 5816265-5 (Version None)
Quarter: 2008Q3

REPORT INFORMATION
  Report Type: 
  Country: None (occurrence: None)
  Receive Date: 20080717
  Receipt Date: 20080717
  Transmission Date: 20090109
  Serious: No
  Sender: FDA-Public Use
  Company Number: None

PATIENT

DRUGS (2)
  1. GEODON [Suspect]
     Indication: SCHIZOPHRENIA
     Dosage: 60MG 2 TABLET AT NIGHT
     Dates: start: 20071228
  2. ZIPRASIDONE HYDROCHLORIDE [Suspect]
     Indication: MENTAL DISORDER

REACTIONS (2)
  - DRY MOUTH [None]
  - POLLAKIURIA [None]
